FAERS Safety Report 7603030-1 (Version None)
Quarter: 2011Q3

REPORT INFORMATION
  Report Type: 
  Country: None (occurrence: None)
  Receive Date: 20110711
  Receipt Date: 20110711
  Transmission Date: 20111222
  Serious: Yes (Other)
  Sender: FDA-Public Use
  Company Number: None

PATIENT
  Sex: Female
  Weight: 116.6 kg

DRUGS (1)
  1. ELOXATIN [Suspect]
     Indication: COLON CANCER
     Dosage: 113.5 MG Q2 WEEKS IV 11:48-13:00
     Route: 042
     Dates: start: 20110701, end: 20110701

REACTIONS (6)
  - DYSPNOEA [None]
  - PRURITUS [None]
  - SENSATION OF FOREIGN BODY [None]
  - INFUSION RELATED REACTION [None]
  - DYSPHAGIA [None]
  - THROAT IRRITATION [None]
